FAERS Safety Report 14710602 (Version 1)
Quarter: 2018Q2

REPORT INFORMATION
  Report Type: Spontaneous
  Country: US (occurrence: US)
  Receive Date: 20180403
  Receipt Date: 20180403
  Transmission Date: 20180711
  Serious: No
  Sender: FDA-Public Use
  Company Number: US-ROCHE-2057510

PATIENT
  Sex: Male
  Weight: 72.64 kg

DRUGS (2)
  1. EXCEDRIN (UNITED STATES) [Concomitant]
     Dosage: ONGOING:UNKNOWN
     Route: 048
     Dates: start: 20171228
  2. ERIVEDGE [Suspect]
     Active Substance: VISMODEGIB
     Indication: BASAL CELL CARCINOMA
     Dosage: TAKE 1 CAPSULE BY MOUTH
     Route: 048
     Dates: start: 20171228

REACTIONS (1)
  - Rash [Unknown]
